FAERS Safety Report 6346095-X (Version None)
Quarter: 2009Q3

REPORT INFORMATION
  Report Type: 
  Country: None (occurrence: None)
  Receive Date: 20090909
  Receipt Date: 20090827
  Transmission Date: 20100115
  Serious: Yes (Other)
  Sender: FDA-Public Use
  Company Number: US-PFIZER INC-2009239006

PATIENT
  Age: 50 Year
  Sex: Male
  Weight: 101.13 kg

DRUGS (7)
  1. GEODON [Suspect]
     Dosage: 80 MG
     Route: 048
     Dates: start: 20090623, end: 20090702
  2. SERTRALINE HYDROCHLORIDE [Concomitant]
  3. WELLBUTRIN SR [Concomitant]
     Dosage: FREQUENCY: 2X/DAY,
  4. OMEPRAZOLE [Concomitant]
     Dosage: 20 MG, 2X/DAY
  5. LOMOTIL [Concomitant]
     Dosage: UNK
  6. CYCLOBENZAPRINE [Concomitant]
     Dosage: 3 TIMES A DAY AS NEEDED
  7. ALPRAZOLAM [Concomitant]
     Dosage: TWO TIMES AS NEEDED

REACTIONS (8)
  - AGITATION [None]
  - ANXIETY [None]
  - BIPOLAR DISORDER [None]
  - HALLUCINATION, AUDITORY [None]
  - INSOMNIA [None]
  - MANIA [None]
  - RESTLESSNESS [None]
  - TACHYPHRENIA [None]
